FAERS Safety Report 12861607 (Version 3)
Quarter: 2019Q1

REPORT INFORMATION
  Report Type: Spontaneous
  Country: DK (occurrence: DK)
  Receive Date: 20161019
  Receipt Date: 20190327
  Transmission Date: 20190417
  Serious: Yes (Hospitalization, Other)
  Sender: FDA-Public Use
  Company Number: DK-AUROBINDO-AUR-APL-2016-12819

PATIENT

DRUGS (3)
  1. FLUCONAZOLE HARD CAPSULES [Interacting]
     Active Substance: FLUCONAZOLE
     Indication: FUNGAL SKIN INFECTION
     Dosage: 50 MG, DAILY
     Route: 065
  2. SIMVASTATIN TABLETS 40 MG [Interacting]
     Active Substance: SIMVASTATIN
     Indication: PRODUCT USED FOR UNKNOWN INDICATION
     Dosage: 40 MG, DAILY
     Route: 065
  3. FLUCONAZOLE. [Suspect]
     Active Substance: FLUCONAZOLE
     Indication: FUNGAL SKIN INFECTION
     Dosage: 50 MILLIGRAM, DAILY
     Route: 065

REACTIONS (7)
  - Muscular weakness [Recovered/Resolved]
  - Drug interaction [Recovered/Resolved]
  - Inflammation [Recovered/Resolved]
  - Myopathy [Recovered/Resolved]
  - Myalgia [Recovered/Resolved]
  - Necrotising myositis [Recovered/Resolved]
  - Rhabdomyolysis [Recovered/Resolved]
